FAERS Safety Report 10197043 (Version 2)
Quarter: 2014Q2

REPORT INFORMATION
  Report Type: Spontaneous
  Country: JP (occurrence: JP)
  Receive Date: 20140527
  Receipt Date: 20140530
  Transmission Date: 20141212
  Serious: Yes (Other)
  Sender: FDA-Public Use
  Company Number: JP-SA-2014SA066741

PATIENT
  Sex: Male

DRUGS (2)
  1. MYSLEE [Suspect]
     Indication: PRODUCT USED FOR UNKNOWN INDICATION
     Route: 048
  2. MYSLEE [Suspect]
     Indication: PRODUCT USED FOR UNKNOWN INDICATION
     Route: 048
     Dates: start: 20140401

REACTIONS (3)
  - Road traffic accident [Unknown]
  - Anterograde amnesia [Unknown]
  - Intentional product misuse [Unknown]
